FAERS Safety Report 8435246-9 (Version None)
Quarter: 2012Q2

REPORT INFORMATION
  Report Type: 
  Country: None (occurrence: None)
  Receive Date: 20120614
  Receipt Date: 20120613
  Transmission Date: 20120825
  Serious: Yes (Other)
  Sender: FDA-Public Use
  Company Number: US-BAYER-2012-058485

PATIENT
  Age: 37 Year
  Sex: Female

DRUGS (1)
  1. AVELOX [Suspect]
     Dosage: 400 MG, UNK
     Route: 048

REACTIONS (3)
  - PRURITUS [None]
  - THROAT TIGHTNESS [None]
  - DYSPNOEA [None]
